FAERS Safety Report 6996570-X (Version None)
Quarter: 2010Q3

REPORT INFORMATION
  Report Type: 
  Country: None (occurrence: None)
  Receive Date: 20100918
  Receipt Date: 20090326
  Transmission Date: 20110219
  Serious: No
  Sender: FDA-Public Use
  Company Number: US-WYE-H08734409

PATIENT
  Age: 44 Year
  Sex: Female
  Weight: 69.46 kg

DRUGS (2)
  1. EFFEXOR XR [Suspect]
     Indication: DEPRESSION
     Route: 048
     Dates: end: 20080101
  2. EFFEXOR XR [Suspect]
     Indication: ANXIETY
     Route: 048

REACTIONS (6)
  - DRUG WITHDRAWAL SYNDROME [None]
  - FOOD AVERSION [None]
  - HYPERSEXUALITY [None]
  - MANIA [None]
  - NAUSEA [None]
  - WEIGHT DECREASED [None]
